FAERS Safety Report 23211596 (Version 13)
Quarter: 2025Q3

REPORT INFORMATION
  Report Type: Report from Study
  Country: US (occurrence: US)
  Receive Date: 20231121
  Receipt Date: 20250701
  Transmission Date: 20251020
  Serious: No
  Sender: TAKEDA
  Company Number: US-TAKEDA-2022TUS022396

PATIENT
  Age: 47 Year
  Sex: Female
  Weight: 78 kg

DRUGS (23)
  1. HUMAN IMMUNOGLOBULIN G [Suspect]
     Active Substance: HUMAN IMMUNOGLOBULIN G
     Indication: Immunodeficiency common variable
     Dosage: 30 GRAM, Q3WEEKS
     Dates: start: 20090506
  2. HUMAN IMMUNOGLOBULIN G [Suspect]
     Active Substance: HUMAN IMMUNOGLOBULIN G
     Dosage: 30 GRAM, Q3WEEKS
     Dates: start: 20090519
  3. HUMAN IMMUNOGLOBULIN G [Suspect]
     Active Substance: HUMAN IMMUNOGLOBULIN G
     Dosage: 30 GRAM, Q3WEEKS
  4. ACETAMINOPHEN [Concomitant]
     Active Substance: ACETAMINOPHEN
  5. EPINEPHRINE [Concomitant]
     Active Substance: EPINEPHRINE
  6. SODIUM CHLORIDE [Concomitant]
     Active Substance: SODIUM CHLORIDE
  7. SERTRALINE HYDROCHLORIDE [Concomitant]
     Active Substance: SERTRALINE HYDROCHLORIDE
  8. ATORVASTATIN CALCIUM [Concomitant]
     Active Substance: ATORVASTATIN CALCIUM
  9. LEVOTHYROXINE SODIUM [Concomitant]
     Active Substance: LEVOTHYROXINE SODIUM
  10. DIPHENHYDRAMINE HYDROCHLORIDE [Concomitant]
     Active Substance: DIPHENHYDRAMINE HYDROCHLORIDE
  11. WELLBUTRIN XL [Concomitant]
     Active Substance: BUPROPION HYDROCHLORIDE
  12. OMEPRAZOLE [Concomitant]
     Active Substance: OMEPRAZOLE
  13. IBUPROFEN [Concomitant]
     Active Substance: IBUPROFEN
  14. METFORMIN HYDROCHLORIDE [Concomitant]
     Active Substance: METFORMIN HYDROCHLORIDE
  15. LOSARTAN POTASSIUM [Concomitant]
     Active Substance: LOSARTAN POTASSIUM
  16. BENZONATATE [Concomitant]
     Active Substance: BENZONATATE
  17. VALTREX [Concomitant]
     Active Substance: VALACYCLOVIR HYDROCHLORIDE
  18. CINNAMON [Concomitant]
     Active Substance: CINNAMON
  19. FERROUS SULFATE [Concomitant]
     Active Substance: FERROUS SULFATE
  20. FISH OIL [Concomitant]
     Active Substance: FISH OIL
  21. CALCIUM [Concomitant]
     Active Substance: CALCIUM
  22. Omega [Concomitant]
  23. IRON [Concomitant]
     Active Substance: IRON

REACTIONS (10)
  - Dry skin [Unknown]
  - Insurance issue [Unknown]
  - Urinary tract infection [Unknown]
  - Product use issue [Unknown]
  - Anxiety [Unknown]
  - Erythema [Unknown]
  - Pruritus [Unknown]
  - Headache [Recovering/Resolving]
  - Urticaria [Unknown]
  - Dizziness [Recovered/Resolved]

NARRATIVE: CASE EVENT DATE: 20240712
